FAERS Safety Report 18160931 (Version 3)
Quarter: 2021Q3

REPORT INFORMATION
  Report Type: Spontaneous
  Country: CA (occurrence: CA)
  Receive Date: 20200818
  Receipt Date: 20210728
  Transmission Date: 20211014
  Serious: Yes (Other)
  Sender: FDA-Public Use
  Company Number: CA-AUROBINDO-AUR-APL-2020-039145

PATIENT
  Age: 41 Year
  Sex: Male

DRUGS (5)
  1. VITAMINS NOS [Concomitant]
     Active Substance: VITAMINS
     Indication: PRODUCT USED FOR UNKNOWN INDICATION
     Dosage: UNK, ONCE A DAY
     Route: 065
  2. METRONIDAZOLE. [Suspect]
     Active Substance: METRONIDAZOLE
     Indication: ANAL ULCER
     Dosage: UNK
     Route: 065
  3. METRONIDAZOLE. [Suspect]
     Active Substance: METRONIDAZOLE
     Indication: INFECTED SKIN ULCER
  4. CIPROFLOXACIN. [Concomitant]
     Active Substance: CIPROFLOXACIN
     Indication: ANAL ULCER
     Dosage: UNK
     Route: 065
  5. STELARA [Suspect]
     Active Substance: USTEKINUMAB
     Indication: CROHN^S DISEASE
     Dosage: UNK
     Route: 058

REACTIONS (17)
  - Neurotoxicity [Recovered/Resolved]
  - Gait disturbance [Not Recovered/Not Resolved]
  - Off label use [Not Recovered/Not Resolved]
  - Intentional product use issue [Recovered/Resolved]
  - Dysarthria [Not Recovered/Not Resolved]
  - Peripheral sensory neuropathy [Not Recovered/Not Resolved]
  - Parkinsonism [Recovered/Resolved]
  - Hypoaesthesia [Not Recovered/Not Resolved]
  - Product use issue [Not Recovered/Not Resolved]
  - Bradykinesia [Recovered/Resolved]
  - Dysdiadochokinesis [Recovered/Resolved]
  - Central nervous system lesion [Not Recovered/Not Resolved]
  - Ataxia [Recovered/Resolved]
  - Dysphonia [Recovered/Resolved]
  - Neuropathy peripheral [Recovered/Resolved]
  - Toxic encephalopathy [Recovered/Resolved]
  - Toxicity to various agents [Recovered/Resolved]
